FAERS Safety Report 8571780-9 (Version None)
Quarter: 2012Q3

REPORT INFORMATION
  Report Type: 
  Country: None (occurrence: None)
  Receive Date: 20120806
  Receipt Date: 20120727
  Transmission Date: 20120928
  Serious: Yes (Death, Other)
  Sender: FDA-Public Use
  Company Number: US-JNJFOC-20120520338

PATIENT
  Sex: Female

DRUGS (2)
  1. TRAMADOL HCL [Suspect]
     Indication: PAIN
     Dosage: 50 MG TABLET (BID 2 X DAY) WAS SPLIT INTO HALF (25 MG) STARTED ON EARLY IN 2010 (SUMMER)
     Route: 048
     Dates: start: 20100801
  2. TRAMADOL HCL [Suspect]
     Dosage: 100 MG TABLET CUT IN HALF AND ADMINISTERED TWICE A DAY
     Route: 048
     Dates: start: 20100101, end: 20101001

REACTIONS (8)
  - VISUAL IMPAIRMENT [None]
  - SOMNOLENCE [None]
  - STARVATION [None]
  - HYPERSENSITIVITY [None]
  - CEREBROVASCULAR ACCIDENT [None]
  - HEMIPLEGIA [None]
  - WRONG TECHNIQUE IN DRUG USAGE PROCESS [None]
  - DYSPNOEA [None]
